FAERS Safety Report 24782821 (Version 1)
Quarter: 2024Q4

REPORT INFORMATION
  Report Type: Spontaneous
  Country: US (occurrence: US)
  Receive Date: 20241227
  Receipt Date: 20241227
  Transmission Date: 20250115
  Serious: No
  Sender: LUNDBECK
  Company Number: US-LUNDBECK-DKLU4008359

PATIENT

DRUGS (4)
  1. SABRIL [Suspect]
     Active Substance: VIGABATRIN
     Indication: Infantile spasms
     Dosage: 900 MILLIGRAM
  2. SABRIL [Suspect]
     Active Substance: VIGABATRIN
     Dosage: 1000 MILLIGRAM
  3. KEPPRA [Concomitant]
     Active Substance: LEVETIRACETAM
     Indication: Product used for unknown indication
  4. VIMPAT [Concomitant]
     Active Substance: LACOSAMIDE
     Indication: Product used for unknown indication

REACTIONS (1)
  - Drug effect less than expected [Not Recovered/Not Resolved]
